FAERS Safety Report 6674050-9 (Version None)
Quarter: 2010Q1

REPORT INFORMATION
  Report Type: 
  Country: None (occurrence: None)
  Receive Date: 20100329
  Receipt Date: 20091026
  Transmission Date: 20100710
  Serious: Yes (Other)
  Sender: FDA-Public Use
  Company Number: 2009289080

PATIENT

DRUGS (2)
  1. GEODON [Suspect]
  2. SOTALOL HCL [Suspect]

REACTIONS (1)
  - ATRIAL FIBRILLATION [None]
